FAERS Safety Report 6818505-2 (Version None)
Quarter: 2010Q3

REPORT INFORMATION
  Report Type: 
  Country: None (occurrence: None)
  Receive Date: 20100706
  Receipt Date: 20080827
  Transmission Date: 20110219
  Serious: No
  Sender: FDA-Public Use
  Company Number: US-PFIZER INC-2008067483

PATIENT
  Sex: Male

DRUGS (8)
  1. ZITHROMAX [Suspect]
     Indication: SINUSITIS
     Dates: start: 20080627, end: 20080701
  2. VICODIN [Concomitant]
  3. HYDROXYZINE [Concomitant]
  4. OMEPRAZOLE [Concomitant]
  5. GARLIC [Concomitant]
  6. FISH OIL [Concomitant]
  7. LOVAZA [Concomitant]
  8. ANTIHYPERTENSIVES [Concomitant]

REACTIONS (2)
  - DYSGEUSIA [None]
  - TONGUE DISORDER [None]
